FAERS Safety Report 7337244-5 (Version None)
Quarter: 2011Q1

REPORT INFORMATION
  Report Type: 
  Country: None (occurrence: None)
  Receive Date: 20110308
  Receipt Date: 20110301
  Transmission Date: 20110831
  Serious: Yes (Hospitalization, Other)
  Sender: FDA-Public Use
  Company Number: US-ELI_LILLY_AND_COMPANY-US201102007542

PATIENT
  Sex: Female

DRUGS (10)
  1. GLUCOSAMINE [Concomitant]
  2. LASIX [Concomitant]
  3. ASA [Concomitant]
  4. VITAMIN D [Concomitant]
  5. BYETTA [Suspect]
     Indication: TYPE 2 DIABETES MELLITUS
     Dosage: 5 UG, UNK
     Dates: start: 20101231, end: 20110110
  6. CALCIUM [Concomitant]
  7. CYMBALTA [Concomitant]
  8. VOLTAREN [Concomitant]
  9. METFORMIN [Concomitant]
     Dosage: 1000 MG, 2/D
  10. PROCARDIA [Concomitant]

REACTIONS (2)
  - PANCREATITIS ACUTE [None]
  - ILEUS [None]
